FAERS Safety Report 4871126-3 (Version None)
Quarter: 2005Q4

REPORT INFORMATION
  Report Type: 
  Country: None (occurrence: None)
  Receive Date: 20051229
  Receipt Date: 20051208
  Transmission Date: 20060501
  Serious: Yes (Hospitalization)
  Sender: FDA-Public Use
  Company Number: FR_030702660

PATIENT
  Age: 51 Year
  Sex: Male

DRUGS (5)
  1. HUMALOG MIX 50/50 [Suspect]
     Indication: DIABETES MELLITUS INSULIN-DEPENDENT
     Dosage: SUBCUTANEOUS
     Route: 058
     Dates: start: 20030101, end: 20030601
  2. HUMULIN (HUMAN INSULIN (RDNA ORIGIN ) (NPH) CARTRIDGE [Suspect]
     Indication: DIABETES MELLITUS INSULIN-DEPENDENT
     Dosage: SUBCUTANEOUS
     Route: 058
     Dates: start: 20030101, end: 20030601
  3. PLAVIX [Concomitant]
  4. ASPEGIC 1000 [Concomitant]
  5. HUMULIN NPH PEN (HUMULIN N PEN) [Concomitant]

REACTIONS (5)
  - ANGIONEUROTIC OEDEMA [None]
  - BLOOD GLUCOSE INCREASED [None]
  - DRUG HYPERSENSITIVITY [None]
  - INJECTION SITE PRURITUS [None]
  - URINE KETONE BODY [None]
